FAERS Safety Report 6496683-5 (Version None)
Quarter: 2009Q4

REPORT INFORMATION
  Report Type: 
  Country: None (occurrence: None)
  Receive Date: 20091210
  Receipt Date: 20090907
  Transmission Date: 20100525
  Serious: Yes (Other)
  Sender: FDA-Public Use
  Company Number: 1000010617

PATIENT

DRUGS (1)
  1. MEMANTINE HCL [Suspect]

REACTIONS (2)
  - ABNORMAL BEHAVIOUR [None]
  - MENTAL DISORDER [None]
